FAERS Safety Report 7609624-1 (Version None)
Quarter: 2011Q3

REPORT INFORMATION
  Report Type: 
  Country: None (occurrence: None)
  Receive Date: 20110714
  Receipt Date: 20110704
  Transmission Date: 20111222
  Serious: Yes (Other)
  Sender: FDA-Public Use
  Company Number: PHHY2010ZA79646

PATIENT
  Sex: Female
  Weight: 76.8 kg

DRUGS (5)
  1. CIMETIDINE [Concomitant]
     Dosage: 200 MG, TID
  2. GLEEVEC [Suspect]
     Indication: CHRONIC MYELOID LEUKAEMIA
     Dosage: 400 MG, QD
     Route: 048
     Dates: start: 20100113
  3. NIFEDIPINE [Concomitant]
     Dosage: 30 MG PER DAY
  4. METFORMIN HCL [Concomitant]
     Dosage: 500 MG PER DAY
  5. ENALAPRIL MALEATE [Concomitant]
     Dosage: 10 MG, BID

REACTIONS (7)
  - NEUROPATHY PERIPHERAL [None]
  - DIZZINESS [None]
  - MUSCLE SPASMS [None]
  - DEHYDRATION [None]
  - ABDOMINAL PAIN UPPER [None]
  - DUODENITIS [None]
  - NAUSEA [None]
